FAERS Safety Report 22253190 (Version 1)
Quarter: 2023Q2

REPORT INFORMATION
  Report Type: Spontaneous
  Country: US (occurrence: US)
  Receive Date: 20230426
  Receipt Date: 20230426
  Transmission Date: 20230722
  Serious: Yes (Life-Threatening, Hospitalization)
  Sender: FDA-Public Use
  Company Number: US-35507-2023-02963

PATIENT
  Sex: Female
  Weight: 1.54 kg

DRUGS (5)
  1. LEVETIRACETAM [Suspect]
     Active Substance: LEVETIRACETAM
     Indication: Early infantile epileptic encephalopathy with burst-suppression
     Dosage: 60 MILLIGRAM/KILOGRAM, QD
     Route: 065
  2. PHENOBARBITAL [Suspect]
     Active Substance: PHENOBARBITAL
     Indication: Early infantile epileptic encephalopathy with burst-suppression
     Dosage: SERUM LEVEL 34-40?G/ML
     Route: 065
  3. LEUCOVORIN [Suspect]
     Active Substance: LEUCOVORIN
     Indication: Early infantile epileptic encephalopathy with burst-suppression
     Dosage: 5 MILLIGRAM/KILOGRAM, QD
     Route: 065
  4. PYRIDOXINE [Suspect]
     Active Substance: PYRIDOXINE
     Indication: Early infantile epileptic encephalopathy with burst-suppression
     Dosage: 30 MILLIGRAM/KILOGRAM, QD
     Route: 065
  5. FOSPHENYTOIN [Concomitant]
     Active Substance: FOSPHENYTOIN
     Indication: Early infantile epileptic encephalopathy with burst-suppression
     Dosage: UNK
     Route: 065

REACTIONS (2)
  - Drug ineffective for unapproved indication [Unknown]
  - Off label use [Unknown]
